FAERS Safety Report 15029719 (Version 4)
Quarter: 2019Q2

REPORT INFORMATION
  Report Type: Spontaneous
  Country: CN (occurrence: CN)
  Receive Date: 20180619
  Receipt Date: 20190503
  Transmission Date: 20190711
  Serious: Yes (Life-Threatening)
  Sender: FDA-Public Use
  Company Number: CN-JNJFOC-20180619801

PATIENT
  Age: 47 Year
  Sex: Female

DRUGS (4)
  1. REMICADE [Suspect]
     Active Substance: INFLIXIMAB
     Indication: RHEUMATOID ARTHRITIS
     Route: 042
     Dates: start: 2013
  2. DEXAMETHASONE. [Concomitant]
     Active Substance: DEXAMETHASONE
     Indication: PREMEDICATION
     Route: 065
     Dates: start: 20180615
  3. REMICADE [Suspect]
     Active Substance: INFLIXIMAB
     Indication: RHEUMATOID ARTHRITIS
     Dosage: DOSE: 200 MG, 1 DOSE RECEIVED ON 25-MAY-2018,
     Route: 042
     Dates: start: 20180525
  4. REMICADE [Suspect]
     Active Substance: INFLIXIMAB
     Indication: RHEUMATOID ARTHRITIS
     Dosage: DOSE: 200 MG, 1 DOSE RECEIVED ON 25-MAY-2018,
     Route: 042
     Dates: start: 20180615

REACTIONS (13)
  - Contraindicated product prescribed [Unknown]
  - Tachycardia [Recovered/Resolved]
  - Asthma [Unknown]
  - Laryngeal discomfort [Unknown]
  - Infusion related reaction [Recovered/Resolved]
  - Eructation [Unknown]
  - Chest discomfort [Unknown]
  - Rash [Unknown]
  - Off label use [Unknown]
  - Myalgia [Recovered/Resolved]
  - Hernia [Unknown]
  - Drug hypersensitivity [Unknown]
  - Chills [Unknown]

NARRATIVE: CASE EVENT DATE: 2013
